FAERS Safety Report 6312335-6 (Version None)
Quarter: 2009Q3

REPORT INFORMATION
  Report Type: 
  Country: None (occurrence: None)
  Receive Date: 20090817
  Receipt Date: 20090810
  Transmission Date: 20100115
  Serious: Yes (Hospitalization)
  Sender: FDA-Public Use
  Company Number: PHHY2009MX33542

PATIENT
  Age: 41 Year
  Sex: Female

DRUGS (1)
  1. EXFORGE [Suspect]
     Indication: HYPERTENSION
     Dosage: UNK
     Dates: start: 20090528, end: 20090806

REACTIONS (2)
  - LEIOMYOMA [None]
  - SURGERY [None]
